FAERS Safety Report 23848545 (Version 3)
Quarter: 2024Q2

REPORT INFORMATION
  Report Type: Spontaneous
  Country: US (occurrence: US)
  Receive Date: 20240513
  Receipt Date: 20240529
  Transmission Date: 20240716
  Serious: No
  Sender: FDA-Public Use
  Company Number: US-HALEON-2173475

PATIENT

DRUGS (1)
  1. SENSODYNE COMPLETE PROTECTION EXTRA FRESH [Suspect]
     Active Substance: STANNOUS FLUORIDE
     Indication: Hyperaesthesia teeth
     Dosage: EXPDATE:202507EXPDATE:202507EXPDATE:202507

REACTIONS (3)
  - Dysgeusia [Unknown]
  - Poor quality product administered [Unknown]
  - Product complaint [Unknown]
